FAERS Safety Report 9360341 (Version 1)
Quarter: 2013Q2

REPORT INFORMATION
  Report Type: Spontaneous
  Country: US (occurrence: None)
  Receive Date: 20130620
  Receipt Date: 20130620
  Transmission Date: 20140414
  Serious: Yes (Hospitalization)
  Sender: FDA-Public Use
  Company Number: None

PATIENT
  Age: 34 Year
  Sex: Female
  Weight: 30.4 kg

DRUGS (4)
  1. CISPLATIN [Suspect]
     Dates: end: 20120110
  2. PACLITAXEL (TAXOL) [Suspect]
     Dates: end: 20120110
  3. DILAUDID [Concomitant]
  4. FENTANYL [Concomitant]

REACTIONS (6)
  - Abdominal pain [None]
  - Diarrhoea [None]
  - Febrile neutropenia [None]
  - Nausea [None]
  - Bacteraemia [None]
  - Klebsiella infection [None]
